FAERS Safety Report 26010629 (Version 1)
Quarter: 2025Q4

REPORT INFORMATION
  Report Type: Spontaneous
  Country: US (occurrence: None)
  Receive Date: 20251107
  Receipt Date: 20251107
  Transmission Date: 20260117
  Serious: Yes (Death, Life-Threatening, Hospitalization, Other)
  Sender: CONCORD BIOTECH LTD
  Company Number: US-CBL-003501

PATIENT
  Age: 71 Year
  Sex: Female

DRUGS (3)
  1. TACROLIMUS [Suspect]
     Active Substance: TACROLIMUS
     Indication: Prophylaxis against transplant rejection
     Route: 065
  2. MYCOPHENOLATE MOFETIL [Suspect]
     Active Substance: MYCOPHENOLATE MOFETIL
     Indication: Prophylaxis against transplant rejection
     Route: 065
  3. MYCOPHENOLATE MOFETIL [Suspect]
     Active Substance: MYCOPHENOLATE MOFETIL
     Indication: Prophylaxis against transplant rejection
     Route: 065

REACTIONS (7)
  - Thrombotic microangiopathy [Fatal]
  - Acute kidney injury [Not Recovered/Not Resolved]
  - Gastroenteritis Escherichia coli [Unknown]
  - Focal segmental glomerulosclerosis [Recovered/Resolved]
  - Vascular hyalinosis [Recovered/Resolved]
  - Fall [Unknown]
  - Physical deconditioning [Unknown]
